FAERS Safety Report 4662936-6 (Version None)
Quarter: 2005Q2

REPORT INFORMATION
  Report Type: 
  Country: None (occurrence: None)
  Receive Date: 20050512
  Receipt Date: 20050426
  Transmission Date: 20051028
  Serious: Yes (Hospitalization)
  Sender: FDA-Public Use
  Company Number: 11022

PATIENT
  Age: 13 Year
  Sex: Female

DRUGS (6)
  1. METHOTREXATE [Suspect]
     Indication: JUVENILE ARTHRITIS
     Dosage: 20 MG WEEKLY, SC
     Route: 058
     Dates: start: 19941201, end: 20040117
  2. ETANERCEPT [Suspect]
     Indication: JUVENILE ARTHRITIS
     Dosage: 12.5 MG 2/WK/20 MG 2/WK;SC
     Route: 058
     Dates: start: 20021213, end: 20030829
  3. ETANERCEPT [Suspect]
     Indication: JUVENILE ARTHRITIS
     Dosage: 12.5 MG 2/WK/20 MG 2/WK;SC
     Route: 058
     Dates: start: 20030828
  4. NAPROXEN [Concomitant]
  5. FOLIC ACID [Concomitant]
  6. PREDNISOLONE [Concomitant]

REACTIONS (2)
  - LIVER FUNCTION TEST ABNORMAL [None]
  - TOOTH DISORDER [None]
